FAERS Safety Report 6559215-9 (Version None)
Quarter: 2010Q1

REPORT INFORMATION
  Report Type: 
  Country: None (occurrence: None)
  Receive Date: 20100129
  Receipt Date: 20091006
  Transmission Date: 20100710
  Serious: No
  Sender: FDA-Public Use
  Company Number: PR-ABBOTT-09P-131-0577377-00

PATIENT
  Sex: Male
  Weight: 113.05 kg

DRUGS (17)
  1. HUMIRA [Suspect]
     Indication: DRUG USE FOR UNKNOWN INDICATION
     Dosage: 1 PEN
     Route: 058
     Dates: end: 20090810
  2. EFFEXOR [Concomitant]
     Indication: DEPRESSION
     Dosage: 1 CAPSULE AT HS
     Route: 048
  3. EFFEXOR [Concomitant]
     Dosage: 1 CAPSULE IN THE AM
     Route: 048
  4. AMITRIPTYLINE HCL [Concomitant]
     Indication: DEPRESSION
     Dosage: 1 CAPSULE IN AM
     Route: 048
  5. AMITRIPTYLINE HCL [Concomitant]
     Dosage: 1 CAPSULE IN AM
     Route: 048
  6. ESTAZOLAM [Concomitant]
     Indication: ANXIETY
     Dosage: 1 TAB HS
     Route: 048
  7. CLONAZEPAM [Concomitant]
     Indication: ANXIETY
     Route: 048
  8. VISTARYL [Concomitant]
     Indication: ANXIETY
     Dosage: 1CAP TID OR BID PRN
     Route: 048
  9. BENADRYL [Concomitant]
     Indication: PRURITUS
     Route: 048
  10. LOPRESSOR [Concomitant]
     Indication: HYPERTENSION
     Dosage: 1 TAB IN AM
     Route: 048
  11. ENALAPRIL MALEATE [Concomitant]
     Indication: HYPERTENSION
     Route: 048
  12. HYDROCHLOROTHIAZIDE [Concomitant]
     Indication: HYPERTENSION
     Dosage: 1 TAB IN AM
     Route: 048
  13. BETAMETHASONE [Concomitant]
     Indication: PSORIASIS
     Dosage: AS INDICATED
     Route: 061
  14. BETAMETHASONE [Concomitant]
     Dosage: AS INDICATED
     Route: 061
  15. CLOBETASOL PROPIONATE [Concomitant]
     Indication: PSORIASIS
     Dosage: AS INDICATED
     Route: 061
  16. SILVADENE [Concomitant]
     Indication: PSORIASIS
     Dosage: AS INDICATED
     Route: 061
  17. SORIATANE [Concomitant]
     Indication: PSORIASIS
     Dosage: AS INDICATED
     Route: 048

REACTIONS (8)
  - DRUG INEFFECTIVE [None]
  - INJECTION SITE CYST [None]
  - INJECTION SITE ERYTHEMA [None]
  - INJECTION SITE INDURATION [None]
  - INJECTION SITE PRURITUS [None]
  - INJECTION SITE REACTION [None]
  - INJECTION SITE SWELLING [None]
  - INJECTION SITE WARMTH [None]
